FAERS Safety Report 11330516 (Version 1)
Quarter: 2015Q3

REPORT INFORMATION
  Report Type: Spontaneous
  Country: US (occurrence: None)
  Receive Date: 20150730
  Receipt Date: 20150730
  Transmission Date: 20151125
  Serious: Yes (Disabling)
  Sender: FDA-Public Use
  Company Number: None

PATIENT
  Age: 31 Year
  Sex: Male
  Weight: 84.37 kg

DRUGS (3)
  1. LEXAPRO [Concomitant]
     Active Substance: ESCITALOPRAM OXALATE
  2. LATUDA [Suspect]
     Active Substance: LURASIDONE HYDROCHLORIDE
     Indication: MENTAL DISORDER
     Dates: start: 20150709, end: 20150729
  3. NICOTINE 4MG GUM [Concomitant]

REACTIONS (7)
  - Muscle tightness [None]
  - Somnolence [None]
  - Head discomfort [None]
  - Vision blurred [None]
  - Restlessness [None]
  - Feeling drunk [None]
  - Feeling abnormal [None]

NARRATIVE: CASE EVENT DATE: 20150711
